FAERS Safety Report 25304705 (Version 1)
Quarter: 2025Q2

REPORT INFORMATION
  Report Type: Spontaneous
  Country: US (occurrence: US)
  Receive Date: 20250513
  Receipt Date: 20250513
  Transmission Date: 20250716
  Serious: No
  Sender: NOVARTIS
  Company Number: US-002147023-NVSC2025US076793

PATIENT

DRUGS (1)
  1. TAFINLAR [Suspect]
     Active Substance: DABRAFENIB MESYLATE
     Indication: Product used for unknown indication
     Route: 065

REACTIONS (1)
  - Intercepted product storage error [Unknown]
